FAERS Safety Report 16564666 (Version 1)
Quarter: 2019Q3

REPORT INFORMATION
  Report Type: Spontaneous
  Country: FR (occurrence: FR)
  Receive Date: 20190712
  Receipt Date: 20190712
  Transmission Date: 20191004
  Serious: Yes (Hospitalization, Other)
  Sender: FDA-Public Use
  Company Number: FR-SA-2019SA186635

PATIENT
  Age: 30 Year
  Sex: Male

DRUGS (2)
  1. TAVANIC [Suspect]
     Active Substance: LEVOFLOXACIN
     Indication: LUNG INFECTION
     Dosage: NON RENSEIGN?E
     Route: 048
     Dates: start: 20190610, end: 20190616
  2. DOXYLAMINE SUCCINATE. [Suspect]
     Active Substance: DOXYLAMINE SUCCINATE
     Indication: INSOMNIA
     Dosage: UNK
     Route: 048
     Dates: start: 20190614, end: 20190620

REACTIONS (2)
  - Hepatocellular injury [Not Recovered/Not Resolved]
  - Cholestasis [Not Recovered/Not Resolved]

NARRATIVE: CASE EVENT DATE: 20190619
